FAERS Safety Report 21184301 (Version 4)
Quarter: 2023Q4

REPORT INFORMATION
  Report Type: Spontaneous
  Country: US (occurrence: US)
  Receive Date: 20220808
  Receipt Date: 20231030
  Transmission Date: 20240110
  Serious: No
  Sender: FDA-Public Use
  Company Number: US-NOVARTISTESTPH-NVSC2022US178574

PATIENT
  Age: 83 Year
  Sex: Male
  Weight: 106 kg

DRUGS (2)
  1. LEQVIO [Suspect]
     Active Substance: INCLISIRAN SODIUM
     Indication: Low density lipoprotein increased
     Dosage: 284 MG, ONCE/SINGLE (SHOT DAY ONE AND MONTH THREE)
     Route: 058
     Dates: start: 20230111, end: 20230111
  2. LEQVIO [Suspect]
     Active Substance: INCLISIRAN SODIUM
     Dosage: 284 MG, ONCE/SINGLE (SHOT DAY ONE AND MONTH THREE)
     Route: 058
     Dates: start: 20230412, end: 20230412

REACTIONS (8)
  - Musculoskeletal discomfort [Recovering/Resolving]
  - Myalgia [Recovering/Resolving]
  - Muscle tightness [Recovering/Resolving]
  - Oedema peripheral [Not Recovered/Not Resolved]
  - Joint stiffness [Recovering/Resolving]
  - Pain [Recovering/Resolving]
  - Muscle fatigue [Recovering/Resolving]
  - Arthralgia [Not Recovered/Not Resolved]

NARRATIVE: CASE EVENT DATE: 20230101
